FAERS Safety Report 5680685-2 (Version None)
Quarter: 2008Q1

REPORT INFORMATION
  Report Type: 
  Country: None (occurrence: None)
  Receive Date: 20080326
  Receipt Date: 20080318
  Transmission Date: 20080703
  Serious: Yes (Hospitalization, Other)
  Sender: FDA-Public Use
  Company Number: JP-ASTRAZENECA-2008AP02094

PATIENT
  Age: 76 Year
  Sex: Female

DRUGS (3)
  1. DIPRIVAN INJECTION - KIT [Suspect]
     Indication: JOINT SURGERY
     Dosage: TARGET BLOOD PROPOFOL CONCENTRATION: 3.0 - 0.6 MICRO-G/ML
     Route: 042
     Dates: start: 20080317, end: 20080317
  2. FENTANYL [Concomitant]
     Route: 042
  3. ULTIVA [Concomitant]
     Route: 013

REACTIONS (1)
  - DELAYED RECOVERY FROM ANAESTHESIA [None]
